FAERS Safety Report 13829968 (Version 3)
Quarter: 2017Q4

REPORT INFORMATION
  Report Type: Report from Study
  Country: JP (occurrence: JP)
  Receive Date: 20170803
  Receipt Date: 20171113
  Transmission Date: 20180320
  Serious: Yes (Other)
  Sender: FDA-Public Use
  Company Number: JP-VIFOR (INTERNATIONAL) INC.-VIT-2016-07447

PATIENT
  Age: 77 Year
  Sex: Male
  Weight: 56.3 kg

DRUGS (20)
  1. CALCIUM CARBONATE. [Concomitant]
     Active Substance: CALCIUM CARBONATE
     Indication: HYPERPHOSPHATAEMIA
     Route: 048
  2. LASIX [Concomitant]
     Active Substance: FUROSEMIDE
     Route: 048
  3. NESP [Concomitant]
     Active Substance: DARBEPOETIN ALFA
     Route: 065
     Dates: start: 20160704, end: 20160801
  4. NESP [Concomitant]
     Active Substance: DARBEPOETIN ALFA
     Dates: start: 20160923, end: 20161121
  5. NESP [Concomitant]
     Active Substance: DARBEPOETIN ALFA
     Dates: start: 20161121, end: 20170222
  6. GASTER [Concomitant]
     Active Substance: FAMOTIDINE
     Route: 048
     Dates: start: 20170517
  7. PURSENNID [Concomitant]
     Active Substance: SENNOSIDES A AND B
     Route: 048
     Dates: start: 20170306, end: 20170306
  8. MAINTATE [Concomitant]
     Active Substance: BISOPROLOL FUMARATE
     Route: 048
  9. REMITCH [Concomitant]
     Active Substance: NALFURAFINE HYDROCHLORIDE
     Route: 048
     Dates: start: 20160610
  10. MUCOSOLVAN [Concomitant]
     Active Substance: AMBROXOL HYDROCHLORIDE
  11. ADALAT CC [Concomitant]
     Active Substance: NIFEDIPINE
     Route: 048
     Dates: start: 20160615, end: 20160622
  12. LASIX [Concomitant]
     Active Substance: FUROSEMIDE
     Route: 048
  13. NESP [Concomitant]
     Active Substance: DARBEPOETIN ALFA
     Dates: start: 20170222
  14. VELPHORO [Suspect]
     Active Substance: FERRIC OXYHYDROXIDE
     Indication: HYPERPHOSPHATAEMIA
     Route: 048
     Dates: start: 20160610, end: 20170531
  15. URIADEC [Concomitant]
     Active Substance: TOPIROXOSTAT
     Route: 048
     Dates: start: 20170322
  16. ADALAT CC [Concomitant]
     Active Substance: NIFEDIPINE
     Route: 048
     Dates: start: 20161017
  17. NESP [Concomitant]
     Active Substance: DARBEPOETIN ALFA
     Route: 065
     Dates: end: 20160704
  18. PURSENNID [Concomitant]
     Active Substance: SENNOSIDES A AND B
     Route: 048
     Dates: start: 20160810, end: 20160810
  19. PARIET [Concomitant]
     Active Substance: RABEPRAZOLE SODIUM
     Route: 048
     Dates: end: 20170516
  20. KIDMIN [Concomitant]
     Active Substance: AMINO ACIDS\ELECTROLYTES NOS
     Route: 041

REACTIONS (6)
  - Decreased appetite [Recovered/Resolved]
  - Bronchitis [Recovering/Resolving]
  - Blood albumin decreased [Unknown]
  - Cough [Recovering/Resolving]
  - C-reactive protein increased [Recovered/Resolved]
  - Serum ferritin increased [Recovered/Resolved]

NARRATIVE: CASE EVENT DATE: 20160829
